FAERS Safety Report 8124636-X (Version None)
Quarter: 2012Q1

REPORT INFORMATION
  Report Type: 
  Country: None (occurrence: None)
  Receive Date: 20120209
  Receipt Date: 20120209
  Transmission Date: 20120608
  Serious: Yes (Other)
  Sender: FDA-Public Use
  Company Number: None

PATIENT
  Age: 58 Year
  Sex: Female
  Weight: 71.667 kg

DRUGS (12)
  1. ACARBOSE [Concomitant]
  2. CLONAZEPAM [Concomitant]
  3. LYRICA [Concomitant]
  4. PANTOPRAZOLE [Concomitant]
  5. TRIAMCINOLONE DENTAL PASTE [Concomitant]
  6. LIDOCAINE [Concomitant]
  7. ARMOR THYROID [Concomitant]
  8. SEROQUEL [Concomitant]
  9. EMSAM [Suspect]
     Indication: DEPRESSION
     Dosage: 12MG
     Dates: start: 20111014, end: 20120208
  10. TEMAZEPAM [Concomitant]
  11. DUCTUS ATE [Concomitant]
  12. HYDROCODONE BITARTRATE + ACETAMINOPHEN [Concomitant]

REACTIONS (3)
  - WEIGHT DECREASED [None]
  - PAIN [None]
  - TONGUE ULCERATION [None]
